FAERS Safety Report 10754155 (Version 2)
Quarter: 2015Q1

REPORT INFORMATION
  Report Type: Spontaneous
  Country: ES (occurrence: ES)
  Receive Date: 20150202
  Receipt Date: 20150209
  Transmission Date: 20150721
  Serious: Yes (Other)
  Sender: FDA-Public Use
  Company Number: ES-ROCHE-1530571

PATIENT
  Age: 65 Year
  Sex: Female

DRUGS (8)
  1. XOLAIR [Suspect]
     Active Substance: OMALIZUMAB
     Dosage: INCREASING DOSE OF 3 VIALS PER MONTH?LAST OMALIZUMAB DOSE RECEIVED ON 07/JAN/2015
     Route: 058
     Dates: start: 201411
  2. XOLAIR [Suspect]
     Active Substance: OMALIZUMAB
     Route: 058
     Dates: start: 20150107, end: 20150107
  3. SERETIDE [Concomitant]
     Active Substance: FLUTICASONE FUROATE\SALMETEROL XINAFOATE
  4. ENALAPRIL [Concomitant]
     Active Substance: ENALAPRIL
  5. SINGULAIR [Concomitant]
     Active Substance: MONTELUKAST SODIUM
  6. XOLAIR [Suspect]
     Active Substance: OMALIZUMAB
     Indication: ASTHMA
     Dosage: 2 VIALS
     Route: 058
     Dates: end: 20141008
  7. TERTENSIF [Concomitant]
  8. FLIXOTIDE [Concomitant]
     Active Substance: FLUTICASONE PROPIONATE

REACTIONS (5)
  - Palatal oedema [Unknown]
  - Laryngeal oedema [Unknown]
  - Angioedema [Unknown]
  - Bronchospasm [Unknown]
  - Face oedema [Unknown]

NARRATIVE: CASE EVENT DATE: 20150118
